FAERS Safety Report 4631463-4 (Version None)
Quarter: 2005Q2

REPORT INFORMATION
  Report Type: 
  Country: None (occurrence: None)
  Receive Date: 20050407
  Receipt Date: 20050325
  Transmission Date: 20051028
  Serious: Yes (Hospitalization, Other)
  Sender: FDA-Public Use
  Company Number: HQWYE429728MAR05

PATIENT
  Age: 28 Year
  Sex: Female

DRUGS (2)
  1. INDERAL [Suspect]
     Indication: LONG QT SYNDROME CONGENITAL
     Dosage: 30 MG 1X PER 1 DAY ORAL
     Route: 048
     Dates: start: 20031101, end: 20040910
  2. INDERAL [Suspect]
     Indication: LONG QT SYNDROME CONGENITAL
     Dosage: 30 MG 1X PER 1 DAY ORAL
     Route: 048
     Dates: start: 20040914

REACTIONS (4)
  - DRUG EXPOSURE DURING PREGNANCY [None]
  - PREGNANCY [None]
  - THREATENED LABOUR [None]
  - WHITE BLOOD CELL COUNT INCREASED [None]
